FAERS Safety Report 9690852 (Version 1)
Quarter: 2013Q4

REPORT INFORMATION
  Report Type: Spontaneous
  Country: NL (occurrence: NL)
  Receive Date: 20131115
  Receipt Date: 20131115
  Transmission Date: 20140711
  Serious: Yes (Other)
  Sender: FDA-Public Use
  Company Number: NL-009507513-1311NLD006163

PATIENT
  Age: 32 Year
  Sex: Female

DRUGS (1)
  1. AERIUS [Suspect]
     Dosage: 5 MG, QD
     Route: 048

REACTIONS (3)
  - Gastric bypass [Unknown]
  - Urticaria [Not Recovered/Not Resolved]
  - Drug ineffective [Not Recovered/Not Resolved]
